FAERS Safety Report 8891430 (Version 1)
Quarter: 2012Q4

REPORT INFORMATION
  Report Type: Spontaneous
  Country: US (occurrence: None)
  Receive Date: 20121105
  Receipt Date: 20121105
  Transmission Date: 20130627
  Serious: Yes (Death)
  Sender: FDA-Public Use
  Company Number: None

PATIENT
  Age: 57 Year
  Sex: Male
  Weight: 84.9 kg

DRUGS (1)
  1. ROMIPLOSTIM [Suspect]
     Route: 058
     Dates: start: 20120502, end: 20120823

REACTIONS (1)
  - Portal vein thrombosis [None]
